FAERS Safety Report 9520948 (Version 1)
Quarter: 2013Q3

REPORT INFORMATION
  Report Type: Spontaneous
  Country: US (occurrence: US)
  Receive Date: 20130913
  Receipt Date: 20130913
  Transmission Date: 20140515
  Serious: No
  Sender: FDA-Public Use
  Company Number: US-PFIZER INC-2013263495

PATIENT
  Sex: Female

DRUGS (1)
  1. LYRICA [Suspect]
     Dosage: UNK

REACTIONS (7)
  - Feeling abnormal [Unknown]
  - Dyspnoea [Unknown]
  - Dizziness [Unknown]
  - Vision blurred [Unknown]
  - Lethargy [Unknown]
  - Pain [Unknown]
  - Neuralgia [Unknown]
